FAERS Safety Report 14459296 (Version 1)
Quarter: 2018Q1

REPORT INFORMATION
  Report Type: Spontaneous
  Country: US (occurrence: US)
  Receive Date: 20180130
  Receipt Date: 20180130
  Transmission Date: 20180509
  Serious: No
  Sender: FDA-Public Use
  Company Number: US-ACORDA-ACO_136022_2017

PATIENT
  Age: 57 Year
  Sex: Female

DRUGS (1)
  1. AMPYRA [Suspect]
     Active Substance: DALFAMPRIDINE
     Indication: MULTIPLE SCLEROSIS
     Dosage: 10 MG, Q 12 HRS
     Route: 048
     Dates: start: 20160817, end: 20170328

REACTIONS (9)
  - Crying [Recovered/Resolved]
  - Asthenia [Unknown]
  - Fatigue [Unknown]
  - Dizziness [Unknown]
  - Insomnia [Unknown]
  - Urinary tract infection [Unknown]
  - Visual impairment [Unknown]
  - Back pain [Unknown]
  - Feeling drunk [Unknown]

NARRATIVE: CASE EVENT DATE: 201703
